FAERS Safety Report 6652035-6 (Version None)
Quarter: 2010Q1

REPORT INFORMATION
  Report Type: 
  Country: None (occurrence: None)
  Receive Date: 20100325
  Receipt Date: 20100319
  Transmission Date: 20100710
  Serious: Yes (Hospitalization)
  Sender: FDA-Public Use
  Company Number: US-GILEAD-2010-0027959

PATIENT
  Sex: Female
  Weight: 106.8 kg

DRUGS (24)
  1. LETAIRIS [Suspect]
     Indication: PULMONARY ARTERIAL HYPERTENSION
     Route: 048
     Dates: start: 20100224
  2. REVATIO [Concomitant]
  3. LASIX [Concomitant]
  4. DIOVAN [Concomitant]
  5. LIPITOR [Concomitant]
  6. DUONEB [Concomitant]
  7. PULMICORT [Concomitant]
  8. NOVOLIN [Concomitant]
  9. ZOLOFT [Concomitant]
  10. OMEPRAZOLE [Concomitant]
  11. SYNTHROID [Concomitant]
  12. PREDNISONE TAB [Concomitant]
  13. AMBIEN [Concomitant]
  14. RESTASIS [Concomitant]
  15. FOSAMAX [Concomitant]
  16. MULTI-VITAMIN [Concomitant]
  17. CALCIUM AND MAGNESIUM [Concomitant]
  18. FISH OIL [Concomitant]
  19. ESTER C [Concomitant]
  20. COENZYME Q10 [Concomitant]
  21. OSCAL [Concomitant]
  22. METHOTREXATE [Concomitant]
  23. FOLIC ACID [Concomitant]
  24. POTASSIUM CHLORIDE CR [Concomitant]

REACTIONS (4)
  - DISORIENTATION [None]
  - DIZZINESS [None]
  - ERYTHEMA [None]
  - SWELLING FACE [None]
